FAERS Safety Report 13182833 (Version 5)
Quarter: 2018Q2

REPORT INFORMATION
  Report Type: Report from Study
  Country: BE (occurrence: BE)
  Receive Date: 20170203
  Receipt Date: 20180519
  Transmission Date: 20180711
  Serious: Yes (Hospitalization, Other)
  Sender: FDA-Public Use
  Company Number: BE-ROCHE-1839729

PATIENT
  Age: 75 Year
  Sex: Female
  Weight: 63.3 kg

DRUGS (17)
  1. BEVACIZUMAB. [Suspect]
     Active Substance: BEVACIZUMAB
     Indication: OVARIAN CANCER
     Route: 042
     Dates: start: 20160225
  2. BEVACIZUMAB. [Suspect]
     Active Substance: BEVACIZUMAB
     Route: 042
     Dates: start: 20160426
  3. BEVACIZUMAB. [Suspect]
     Active Substance: BEVACIZUMAB
     Route: 042
     Dates: start: 20160902
  4. PARACETAMOL [Concomitant]
     Active Substance: ACETAMINOPHEN
  5. ASAFLOW [Concomitant]
     Active Substance: ASPIRIN
     Route: 065
     Dates: start: 201511
  6. EFEXOR [Concomitant]
     Active Substance: VENLAFAXINE HYDROCHLORIDE
  7. PACLITAXEL. [Suspect]
     Active Substance: PACLITAXEL
     Indication: OVARIAN CANCER
     Route: 042
     Dates: start: 20160225
  8. STEOVIT [Concomitant]
     Active Substance: CALCIUM CARBONATE
     Route: 065
     Dates: start: 20160812
  9. CARBOPLATIN. [Suspect]
     Active Substance: CARBOPLATIN
     Indication: OVARIAN CANCER
     Dosage: 2 AUC
     Route: 042
     Dates: start: 20160225
  10. BEVACIZUMAB. [Suspect]
     Active Substance: BEVACIZUMAB
     Route: 042
     Dates: start: 20160317
  11. BEVACIZUMAB. [Suspect]
     Active Substance: BEVACIZUMAB
     Route: 042
     Dates: start: 20160308
  12. BEVACIZUMAB. [Suspect]
     Active Substance: BEVACIZUMAB
     Route: 042
     Dates: start: 20160520
  13. SIPRALEXA [Concomitant]
     Active Substance: ESCITALOPRAM OXALATE
  14. SIMVASTATIN. [Concomitant]
     Active Substance: SIMVASTATIN
  15. FRAXODI [Concomitant]
     Active Substance: NADROPARIN CALCIUM
     Route: 065
     Dates: start: 201512
  16. TRADONAL [Concomitant]
     Active Substance: TRAMADOL HYDROCHLORIDE
  17. AMOCLANE [Concomitant]
     Indication: INFECTION
     Route: 065
     Dates: start: 20160202, end: 20160207

REACTIONS (6)
  - Hypertension [Not Recovered/Not Resolved]
  - Dysgeusia [Not Recovered/Not Resolved]
  - Epilepsy [Recovered/Resolved]
  - Spinal compression fracture [Not Recovered/Not Resolved]
  - Wound dehiscence [Not Recovered/Not Resolved]
  - Proteinuria [Recovered/Resolved]

NARRATIVE: CASE EVENT DATE: 20160325
